FAERS Safety Report 21856172 (Version 2)
Quarter: 2023Q1

REPORT INFORMATION
  Report Type: Spontaneous
  Country: DE (occurrence: DE)
  Receive Date: 20230112
  Receipt Date: 20230213
  Transmission Date: 20230417
  Serious: Yes (Hospitalization, Other)
  Sender: FDA-Public Use
  Company Number: DE-VERTEX PHARMACEUTICALS-2021-007028

PATIENT
  Age: 8 Year
  Sex: Female

DRUGS (5)
  1. ORKAMBI [Suspect]
     Active Substance: IVACAFTOR\LUMACAFTOR
     Indication: Cystic fibrosis
     Dosage: UNK
     Route: 048
     Dates: end: 2021
  2. PULMOZYME [Concomitant]
     Active Substance: DORNASE ALFA
  3. FLUTICASONE PROPIONATE\SALMETEROL XINAFOATE [Concomitant]
     Active Substance: FLUTICASONE PROPIONATE\SALMETEROL XINAFOATE
  4. PANCRELIPASE [Concomitant]
     Active Substance: PANCRELIPASE
  5. OMEPRAZOLE [Concomitant]
     Active Substance: OMEPRAZOLE

REACTIONS (15)
  - Achromobacter infection [Unknown]
  - Stenotrophomonas infection [Unknown]
  - Pseudomonas infection [Unknown]
  - Haemophilus infection [Unknown]
  - Aspergillus infection [Unknown]
  - Staphylococcal infection [Unknown]
  - Granulomatous liver disease [Not Recovered/Not Resolved]
  - Mycobacterial infection [Recovered/Resolved]
  - Infective pulmonary exacerbation of cystic fibrosis [Unknown]
  - Pyrexia [Unknown]
  - Night sweats [Unknown]
  - Fatigue [Unknown]
  - Weight decreased [Unknown]
  - Pulmonary function test decreased [Recovered/Resolved]
  - Toxicity to various agents [Unknown]
